FAERS Safety Report 23608096 (Version 1)
Quarter: 2024Q1

REPORT INFORMATION
  Report Type: Spontaneous
  Country: RO (occurrence: RO)
  Receive Date: 20240307
  Receipt Date: 20240307
  Transmission Date: 20240410
  Serious: Yes (Other)
  Sender: FDA-Public Use
  Company Number: None

PATIENT
  Age: 63 Year
  Sex: Female
  Weight: 59 kg

DRUGS (4)
  1. GENTAMICIN [Suspect]
     Active Substance: GENTAMICIN
     Indication: Product used for unknown indication
     Route: 065
  2. AMPICILLIN [Suspect]
     Active Substance: AMPICILLIN
     Indication: Product used for unknown indication
     Route: 065
  3. IOPAMIRO [Suspect]
     Active Substance: IOPAMIDOL
     Indication: Product used for unknown indication
     Route: 042
     Dates: start: 20240215, end: 20240215
  4. EBASTINE [Concomitant]
     Active Substance: EBASTINE
     Indication: Product used for unknown indication

REACTIONS (5)
  - Dyspnoea at rest [Recovered/Resolved]
  - Vomiting [Recovered/Resolved]
  - Hypersensitivity [Recovered/Resolved]
  - Nausea [Recovered/Resolved]
  - Headache [Recovered/Resolved]

NARRATIVE: CASE EVENT DATE: 20240215
